FAERS Safety Report 9699106 (Version 1)
Quarter: 2013Q4

REPORT INFORMATION
  Report Type: Spontaneous
  Country: PT (occurrence: PT)
  Receive Date: 20131120
  Receipt Date: 20131120
  Transmission Date: 20140711
  Serious: Yes (Death)
  Sender: FDA-Public Use
  Company Number: PT-ABBVIE-13P-130-1169298-00

PATIENT
  Age: 56 Year
  Sex: Male

DRUGS (3)
  1. VALPROIC ACID [Suspect]
     Indication: STATUS EPILEPTICUS
  2. DIAZEPAM [Suspect]
     Indication: STATUS EPILEPTICUS
  3. PHENYTOIN [Suspect]
     Indication: STATUS EPILEPTICUS

REACTIONS (3)
  - Status epilepticus [Fatal]
  - Drug ineffective [Fatal]
  - Cardiopulmonary failure [Fatal]
